FAERS Safety Report 9719861 (Version 1)
Quarter: 2013Q4

REPORT INFORMATION
  Report Type: Spontaneous
  Country: US (occurrence: US)
  Receive Date: 20131128
  Receipt Date: 20131128
  Transmission Date: 20140711
  Serious: Yes (Hospitalization)
  Sender: FDA-Public Use
  Company Number: US-ASTRAZENECA-2013SE86312

PATIENT
  Age: 769 Month
  Sex: Female
  Weight: 98 kg

DRUGS (9)
  1. BRILINTA [Suspect]
     Indication: STENT PLACEMENT
     Route: 048
     Dates: start: 20131112, end: 20131118
  2. XANAX [Concomitant]
     Indication: VOCAL CORD DISORDER
     Route: 048
  3. LOSARTAN [Concomitant]
     Indication: HYPERTENSION
     Route: 048
  4. ASPIRIN [Concomitant]
     Indication: STENT PLACEMENT
     Route: 048
  5. NITRO PATCH [Concomitant]
     Indication: CHEST PAIN
     Dosage: UNKNOWN
     Route: 061
  6. NITRO [Concomitant]
     Indication: CHEST PAIN
     Route: 048
  7. LIPITOR [Concomitant]
     Indication: BLOOD CHOLESTEROL INCREASED
     Route: 048
  8. TYLENOL [Concomitant]
     Indication: HEADACHE
     Dosage: UNKNOWN PRN
     Route: 048
  9. PROAIR [Concomitant]
     Indication: VOCAL CORD DISORDER
     Dosage: 1-2PUFFS PRN
     Route: 055

REACTIONS (14)
  - Decreased appetite [Recovering/Resolving]
  - Hypertension [Recovering/Resolving]
  - Chest discomfort [Recovering/Resolving]
  - Fatigue [Recovering/Resolving]
  - Balance disorder [Recovering/Resolving]
  - Disturbance in attention [Recovering/Resolving]
  - Hypoaesthesia [Recovering/Resolving]
  - Muscle spasms [Recovering/Resolving]
  - Feeling cold [Recovering/Resolving]
  - Pain in extremity [Recovering/Resolving]
  - Dyspnoea [Recovering/Resolving]
  - Headache [Recovering/Resolving]
  - Dizziness [Recovering/Resolving]
  - Diarrhoea [Recovering/Resolving]
